FAERS Safety Report 18869079 (Version 1)
Quarter: 2021Q1

REPORT INFORMATION
  Report Type: Spontaneous
  Country: US (occurrence: US)
  Receive Date: 20210209
  Receipt Date: 20210209
  Transmission Date: 20210420
  Serious: Yes (Other)
  Sender: FDA-Public Use
  Company Number: US-PURDUE PHARMA-USA-2021-0205434

PATIENT
  Age: 28 Year
  Sex: Female

DRUGS (1)
  1. OXYCONTIN [Suspect]
     Active Substance: OXYCODONE HYDROCHLORIDE
     Indication: LYMPH NODE PAIN
     Route: 048

REACTIONS (2)
  - Euphoric mood [Unknown]
  - Haematemesis [Unknown]

NARRATIVE: CASE EVENT DATE: 20210208
